FAERS Safety Report 6131987-7 (Version None)
Quarter: 2009Q1

REPORT INFORMATION
  Report Type: 
  Country: None (occurrence: None)
  Receive Date: 20090325
  Receipt Date: 20090317
  Transmission Date: 20090719
  Serious: Yes (Other)
  Sender: FDA-Public Use
  Company Number: PHHY2009FR10394

PATIENT

DRUGS (1)
  1. ACLASTA [Suspect]
     Route: 042

REACTIONS (1)
  - GENERALISED OEDEMA [None]
